FAERS Safety Report 9956336 (Version 1)
Quarter: 2014Q1

REPORT INFORMATION
  Report Type: Spontaneous
  Country: US (occurrence: US)
  Receive Date: 20140304
  Receipt Date: 20140304
  Transmission Date: 20141002
  Serious: Yes (Other)
  Sender: FDA-Public Use
  Company Number: US-ASTRAZENECA-2014SE13266

PATIENT
  Age: 79 Year
  Sex: Female
  Weight: 99.8 kg

DRUGS (10)
  1. ANASTROZOLE [Suspect]
     Indication: BREAST CANCER FEMALE
     Route: 048
  2. FASLODEX [Suspect]
     Indication: BREAST CANCER FEMALE
     Dosage: NR BIWK
     Route: 030
  3. LISINOPRIL [Suspect]
     Route: 048
  4. EXEMESTANE [Suspect]
     Route: 065
  5. ASPIRIN [Concomitant]
  6. SPIRONOLACTONE [Concomitant]
  7. CARVEDILOL [Concomitant]
  8. CLOPIDIGREL [Concomitant]
  9. AMLODIPINE [Concomitant]
  10. ISOSORBIDE NITRATE [Concomitant]

REACTIONS (9)
  - Laboratory test abnormal [Unknown]
  - Oral pain [Unknown]
  - Facial pain [Unknown]
  - Gingival pain [Unknown]
  - Oropharyngeal pain [Unknown]
  - Swelling face [Unknown]
  - Aphagia [Unknown]
  - Pain in jaw [Unknown]
  - Drug ineffective [Unknown]
